FAERS Safety Report 10473701 (Version 1)
Quarter: 2014Q3

REPORT INFORMATION
  Report Type: Spontaneous
  Country: US (occurrence: None)
  Receive Date: 20140922
  Receipt Date: 20140922
  Transmission Date: 20150326
  Serious: Yes (Other)
  Sender: FDA-Public Use
  Company Number: 2014090040

PATIENT
  Age: 60 Year
  Sex: Male

DRUGS (3)
  1. ATORVASTATIN (ATORVASTATIN) [Suspect]
     Active Substance: ATORVASTATIN
  2. LUPRAC (TORASEMIDE) [Suspect]
     Active Substance: TORSEMIDE
     Route: 048
  3. LANSOPRAZOLE (LANSOPRAZOLE) [Suspect]
     Active Substance: LANSOPRAZOLE

REACTIONS (2)
  - White blood cell count decreased [None]
  - Neutrophil count decreased [None]
